FAERS Safety Report 7598245-5 (Version None)
Quarter: 2011Q3

REPORT INFORMATION
  Report Type: 
  Country: None (occurrence: None)
  Receive Date: 20110708
  Receipt Date: 20110704
  Transmission Date: 20111222
  Serious: Yes (Other)
  Sender: FDA-Public Use
  Company Number: RS-ROCHE-787364

PATIENT
  Sex: Female

DRUGS (1)
  1. BONIVA [Suspect]
     Indication: OSTEOPOROSIS
     Route: 042
     Dates: start: 20110428

REACTIONS (4)
  - MUSCLE SPASMS [None]
  - BONE PAIN [None]
  - POLLAKIURIA [None]
  - PYREXIA [None]
